FAERS Safety Report 20769652 (Version 1)
Quarter: 2022Q2

REPORT INFORMATION
  Report Type: Report from Study
  Country: NL (occurrence: None)
  Receive Date: 20220429
  Receipt Date: 20220429
  Transmission Date: 20220721
  Serious: Yes (Hospitalization)
  Sender: FDA-Public Use
  Company Number: NL-ROCHE-3083025

PATIENT
  Age: 70 Year
  Sex: Male

DRUGS (4)
  1. ATEZOLIZUMAB [Suspect]
     Active Substance: ATEZOLIZUMAB
     Indication: Non-small cell lung cancer
     Dosage: NUMBER OF CYCLES 2?FREQUENCY: DAY 1 OF EVERY 21 DAYS INDUCTION: FOUR OR SIX CYCLES MAINTENANCE.
     Route: 041
     Dates: start: 20220318, end: 20220408
  2. BEVACIZUMAB [Suspect]
     Active Substance: BEVACIZUMAB
     Indication: Non-small cell lung cancer
     Dosage: NUMBER OF CYCLE: 2
     Route: 042
     Dates: start: 20220318, end: 20220408
  3. PACLITAXEL [Suspect]
     Active Substance: PACLITAXEL
     Indication: Non-small cell lung cancer
     Dosage: NUMBER OF CYCLES: 2? OVER 3 HOURS
     Route: 042
     Dates: start: 20220318, end: 20220408
  4. CARBOPLATIN [Suspect]
     Active Substance: CARBOPLATIN
     Indication: Non-small cell lung cancer
     Dosage: NUMBER OF CYCLES :2? OVER APPROXIMATELY 15-30 MIN
     Route: 042
     Dates: start: 20220318, end: 20220408

REACTIONS (1)
  - Pyrexia [Not Recovered/Not Resolved]

NARRATIVE: CASE EVENT DATE: 20220419
